FAERS Safety Report 20221786 (Version 1)
Quarter: 2021Q4

REPORT INFORMATION
  Report Type: Spontaneous
  Country: NO (occurrence: NO)
  Receive Date: 20211223
  Receipt Date: 20211223
  Transmission Date: 20220304
  Serious: Yes (Life-Threatening)
  Sender: FDA-Public Use
  Company Number: None

PATIENT
  Age: 72 Year
  Sex: Male

DRUGS (2)
  1. BRIDION [Suspect]
     Active Substance: SUGAMMADEX
     Indication: Anaesthesia procedure
     Dosage: 200 MILLIGRAM, TOTAL
     Route: 042
     Dates: start: 20211116, end: 20211116
  2. CEFAZOLIN [Concomitant]
     Active Substance: CEFAZOLIN
     Indication: Antibiotic prophylaxis
     Dosage: TWO DOSES OF 2 GRAMS ADMINISTERED, NO REACTIONS FORM THE FIRST DOSE. THE SECOND DOSE ADMINISTERED AT
     Route: 042
     Dates: start: 20211116, end: 20211116

REACTIONS (1)
  - Anaphylactic reaction [Recovered/Resolved]

NARRATIVE: CASE EVENT DATE: 20211116
